FAERS Safety Report 16465020 (Version 1)
Quarter: 2019Q2

REPORT INFORMATION
  Report Type: Spontaneous
  Country: GB (occurrence: GB)
  Receive Date: 20190621
  Receipt Date: 20190621
  Transmission Date: 20190711
  Serious: Yes (Other)
  Sender: FDA-Public Use
  Company Number: GB-NAPPMUNDI-GBR-2019-0066825

PATIENT
  Sex: Female

DRUGS (1)
  1. BUTEC [Suspect]
     Active Substance: BUPRENORPHINE
     Indication: ANALGESIC THERAPY
     Dosage: 15 MCG, Q1H
     Route: 062

REACTIONS (9)
  - Pain [Unknown]
  - Skin infection [Unknown]
  - Application site exfoliation [Unknown]
  - Device leakage [Unknown]
  - Application site burn [Unknown]
  - Application site scab [Unknown]
  - Product adhesion issue [Unknown]
  - Application site erythema [Unknown]
  - Pyrexia [Unknown]
